FAERS Safety Report 6571649-5 (Version None)
Quarter: 2010Q1

REPORT INFORMATION
  Report Type: 
  Country: None (occurrence: None)
  Receive Date: 20100205
  Receipt Date: 20100126
  Transmission Date: 20100710
  Serious: Yes (Hospitalization, Other)
  Sender: FDA-Public Use
  Company Number: PHHY2009IE08208

PATIENT
  Sex: Female

DRUGS (4)
  1. CLOZARIL [Suspect]
     Indication: SCHIZOPHRENIA
     Dosage: 300 MG DAILY
     Route: 048
     Dates: start: 20081015
  2. CARBIMAZOLE [Suspect]
     Indication: THYROID FUNCTION TEST ABNORMAL
     Dosage: 20 MG DAILY
     Route: 048
     Dates: start: 20090226, end: 20100116
  3. CARBIMAZOLE [Suspect]
     Indication: HYPERTHYROIDISM
  4. ZOPICLONE [Concomitant]
     Indication: INSOMNIA
     Dosage: 7.5 MG DAILY
     Route: 048
     Dates: start: 20050101

REACTIONS (7)
  - CONTUSION [None]
  - HYPERTHYROIDISM [None]
  - MALAISE [None]
  - NEUTROPHIL COUNT DECREASED [None]
  - THYROID FUNCTION TEST ABNORMAL [None]
  - VESSEL PUNCTURE SITE HAEMATOMA [None]
  - WHITE BLOOD CELL COUNT ABNORMAL [None]
